FAERS Safety Report 12690142 (Version 1)
Quarter: 2016Q3

REPORT INFORMATION
  Report Type: Spontaneous
  Country: TW (occurrence: TW)
  Receive Date: 20160826
  Receipt Date: 20160826
  Transmission Date: 20161109
  Serious: Yes (Death, Other)
  Sender: FDA-Public Use
  Company Number: TW-FRESENIUS KABI-FK201605882

PATIENT
  Age: 12 Year
  Sex: Female

DRUGS (1)
  1. CISPLATIN (MANUFACTURER UNKNOWN) [Suspect]
     Active Substance: CISPLATIN
     Indication: UNDIFFERENTIATED NASOPHARYNGEAL CARCINOMA
     Route: 065
     Dates: start: 201408

REACTIONS (2)
  - Nasopharyngeal cancer [Fatal]
  - Blood count abnormal [Unknown]
